FAERS Safety Report 12266079 (Version 4)
Quarter: 2017Q1

REPORT INFORMATION
  Report Type: Report from Study
  Country: None (occurrence: CA)
  Receive Date: 20160413
  Receipt Date: 20170223
  Transmission Date: 20170428
  Serious: Yes (Hospitalization)
  Sender: FDA-Public Use
  Company Number: CA-ABBVIE-16P-028-1604830-00

PATIENT
  Age: 25 Year
  Sex: Female

DRUGS (3)
  1. LUPRON DEPOT [Suspect]
     Active Substance: LEUPROLIDE ACETATE
     Indication: ENDOMETRIOSIS
     Route: 030
     Dates: start: 20150901
  2. NORLUTATE [Concomitant]
     Active Substance: NORETHINDRONE ACETATE
     Indication: PRODUCT USED FOR UNKNOWN INDICATION
  3. GABAPENTIN. [Concomitant]
     Active Substance: GABAPENTIN
     Indication: PAIN
     Route: 065

REACTIONS (19)
  - Tremor [Recovered/Resolved]
  - Abdominal pain [Not Recovered/Not Resolved]
  - Cardiac flutter [Recovered/Resolved]
  - Acne [Not Recovered/Not Resolved]
  - Nightmare [Unknown]
  - Haemorrhage [Not Recovered/Not Resolved]
  - Tooth fracture [Not Recovered/Not Resolved]
  - Hyperhidrosis [Recovered/Resolved]
  - Pelvic pain [Not Recovered/Not Resolved]
  - Chest discomfort [Unknown]
  - Vaginal haemorrhage [Recovered/Resolved]
  - Diarrhoea [Unknown]
  - Pain [Recovered/Resolved]
  - Hot flush [Not Recovered/Not Resolved]
  - Weight increased [Unknown]
  - Drug effect decreased [Unknown]
  - Vomiting [Unknown]
  - Hypoaesthesia [Recovered/Resolved]
  - Bone pain [Not Recovered/Not Resolved]

NARRATIVE: CASE EVENT DATE: 201601
